FAERS Safety Report 8131776-8 (Version None)
Quarter: 2012Q1

REPORT INFORMATION
  Report Type: 
  Country: None (occurrence: None)
  Receive Date: 20120213
  Receipt Date: 20120203
  Transmission Date: 20120608
  Serious: Yes (Life-Threatening, Hospitalization)
  Sender: FDA-Public Use
  Company Number: FR-MPIJNJ-2011-03776

PATIENT

DRUGS (2)
  1. VELCADE [Suspect]
     Indication: MULTIPLE MYELOMA
     Dosage: 2.29 MG, UNK
     Route: 042
     Dates: start: 20100901
  2. VELCADE [Suspect]
     Dosage: 2.29 UNK, UNK
     Dates: start: 20101007, end: 20110701

REACTIONS (2)
  - LUNG DISORDER [None]
  - ACUTE RESPIRATORY DISTRESS SYNDROME [None]
